FAERS Safety Report 18780543 (Version 1)
Quarter: 2021Q1

REPORT INFORMATION
  Report Type: Spontaneous
  Country: US (occurrence: US)
  Receive Date: 20210122
  Receipt Date: 20210122
  Transmission Date: 20210419
  Serious: Yes (Other)
  Sender: FDA-Public Use
  Company Number: None

PATIENT
  Age: 38 Year
  Sex: Female
  Weight: 65.25 kg

DRUGS (3)
  1. THORAZINE [Suspect]
     Active Substance: CHLORPROMAZINE
     Indication: PRODUCT USED FOR UNKNOWN INDICATION
     Route: 058
     Dates: start: 20201010, end: 20201014
  2. ALBUTEROL. [Concomitant]
     Active Substance: ALBUTEROL
  3. QVAR ASTHMA PUMPS [Concomitant]

REACTIONS (4)
  - Palpitations [None]
  - Hypertension [None]
  - Headache [None]
  - Discontinued product administered [None]

NARRATIVE: CASE EVENT DATE: 20201010
